FAERS Safety Report 25858008 (Version 1)
Quarter: 2025Q3

REPORT INFORMATION
  Report Type: Spontaneous
  Country: JP (occurrence: JP)
  Receive Date: 20250929
  Receipt Date: 20250929
  Transmission Date: 20251020
  Serious: Yes (Death, Hospitalization, Other)
  Sender: RISING PHARMACEUTICALS
  Company Number: JP-RISINGPHARMA-JP-2025RISLIT00470

PATIENT
  Age: 85 Year
  Sex: Male

DRUGS (2)
  1. BICALUTAMIDE [Suspect]
     Active Substance: BICALUTAMIDE
     Indication: Prostate cancer
     Route: 065
  2. LEUPROLIDE ACETATE [Concomitant]
     Active Substance: LEUPROLIDE ACETATE
     Route: 065

REACTIONS (6)
  - Respiratory failure [Fatal]
  - Malignant pleural effusion [Fatal]
  - Lymphadenopathy [Unknown]
  - Decreased appetite [Unknown]
  - Dyspnoea [Fatal]
  - Weight decreased [Fatal]
